FAERS Safety Report 5642721-9 (Version None)
Quarter: 2008Q1

REPORT INFORMATION
  Report Type: 
  Country: None (occurrence: None)
  Receive Date: 20080227
  Receipt Date: 20080227
  Transmission Date: 20080703
  Serious: Yes (Hospitalization)
  Sender: FDA-Public Use
  Company Number: None

PATIENT
  Sex: Female
  Weight: 56.246 kg

DRUGS (14)
  1. COUMADIN [Suspect]
     Indication: ATRIAL FIBRILLATION
     Dosage: 3MG PO QD (THERAPY DATES: PRIOR TO ADMISSION)
     Route: 048
  2. TENORMIN [Concomitant]
  3. DECADRON [Concomitant]
  4. LASIX [Concomitant]
  5. POTASSIUM CHLORIDE [Concomitant]
  6. ZAROXOLYN [Concomitant]
  7. XANAX [Concomitant]
  8. COMPAZINE [Concomitant]
  9. SYNTHROID [Concomitant]
  10. LEXAPRO [Concomitant]
  11. FERROUS SULFATE TAB [Concomitant]
  12. ASPIRIN [Concomitant]
  13. CALCIUM [Concomitant]
  14. LOMOTIL [Concomitant]

REACTIONS (2)
  - COAGULOPATHY [None]
  - RECTAL HAEMORRHAGE [None]
